FAERS Safety Report 10229654 (Version 1)
Quarter: 2014Q2

REPORT INFORMATION
  Report Type: Spontaneous
  Country: CH (occurrence: CH)
  Receive Date: 20140611
  Receipt Date: 20140611
  Transmission Date: 20141212
  Serious: Yes (Death, Other)
  Sender: FDA-Public Use
  Company Number: CH-JNJFOC-20140602720

PATIENT
  Age: 80 Year
  Sex: Male

DRUGS (4)
  1. XARELTO [Suspect]
     Indication: SURGERY
     Route: 048
  2. XARELTO [Suspect]
     Indication: THROMBOSIS PROPHYLAXIS
     Route: 048
  3. FRAXIPARIN [Concomitant]
     Route: 065
  4. TILUR [Concomitant]
     Route: 065

REACTIONS (3)
  - Gastrointestinal haemorrhage [Fatal]
  - Anuria [Unknown]
  - Oliguria [Unknown]
